FAERS Safety Report 9053907 (Version 5)
Quarter: 2015Q2

REPORT INFORMATION
  Report Type: Spontaneous
  Country: US (occurrence: US)
  Receive Date: 20130206
  Receipt Date: 20150417
  Transmission Date: 20150821
  Serious: Yes (Hospitalization, Other)
  Sender: FDA-Public Use
  Company Number: US-009507513-1106USA01823

PATIENT
  Sex: Female

DRUGS (6)
  1. FOSAMAX PLUS D [Suspect]
     Active Substance: ALENDRONATE SODIUM\CHOLECALCIFEROL
     Indication: OSTEOPENIA
     Dosage: 70 MG, UNK
     Route: 048
     Dates: start: 20000105, end: 20081013
  2. FOSAMAX [Suspect]
     Active Substance: ALENDRONATE SODIUM
     Dosage: 35 MG, UNK
     Route: 048
     Dates: start: 20000105, end: 20081013
  3. FOSAMAX [Suspect]
     Active Substance: ALENDRONATE SODIUM
     Indication: OSTEOPOROSIS
     Dosage: 70 MG, UNK
     Route: 048
     Dates: start: 199801, end: 20081013
  4. FOSAMAX [Suspect]
     Active Substance: ALENDRONATE SODIUM
     Indication: OSTEOPENIA
     Dosage: 10 MG, UNK
     Route: 048
     Dates: start: 19980114, end: 200001
  5. ALENDRONATE SODIUM. [Suspect]
     Active Substance: ALENDRONATE SODIUM
     Dosage: 70 MG, UNK
     Route: 048
     Dates: start: 20080310, end: 20090530
  6. CITRACAL [Concomitant]
     Active Substance: CALCIUM CITRATE
     Dosage: 630 MG, UNK
     Dates: start: 199006

REACTIONS (44)
  - Intramedullary rod insertion [Recovered/Resolved]
  - Post concussion syndrome [Unknown]
  - Nasal congestion [Unknown]
  - Spinal osteoarthritis [Unknown]
  - Intramedullary rod insertion [Unknown]
  - Low turnover osteopathy [Unknown]
  - Medical device complication [Unknown]
  - Medical device complication [Unknown]
  - Device issue [Unknown]
  - Fall [Unknown]
  - Large intestine polyp [Unknown]
  - Contusion [Recovering/Resolving]
  - Vitamin D deficiency [Unknown]
  - Hot flush [Unknown]
  - Skin reaction [Unknown]
  - Urinary incontinence [Unknown]
  - Migraine [Unknown]
  - Blood pressure increased [Unknown]
  - Depression [Unknown]
  - Abdominal discomfort [Unknown]
  - Appendicectomy [Unknown]
  - Skull fracture [Unknown]
  - Peroneal nerve palsy [Unknown]
  - Muscular weakness [Unknown]
  - Traumatic haematoma [Unknown]
  - Deafness [Unknown]
  - Femur fracture [Recovered/Resolved]
  - Muscle strain [Unknown]
  - Retinal tear [Unknown]
  - Drug ineffective [Unknown]
  - Fall [Unknown]
  - Fall [Unknown]
  - Craniocerebral injury [Unknown]
  - Carpal tunnel syndrome [Unknown]
  - Concussion [Unknown]
  - Anosmia [Unknown]
  - Bursitis [Unknown]
  - Device failure [Unknown]
  - Pain in extremity [Unknown]
  - Pain in extremity [Unknown]
  - Femur fracture [Recovered/Resolved]
  - Muscle strain [Unknown]
  - Rhinitis allergic [Unknown]
  - Arthralgia [Unknown]

NARRATIVE: CASE EVENT DATE: 19980114
